FAERS Safety Report 10037964 (Version 1)
Quarter: 2014Q1

REPORT INFORMATION
  Report Type: Spontaneous
  Country: US (occurrence: None)
  Receive Date: 20140306
  Receipt Date: 20140306
  Transmission Date: 20141002
  Serious: Yes (Other)
  Sender: FDA-Public Use
  Company Number: 163-21880-13082669

PATIENT
  Age: 81 Year
  Sex: Female
  Weight: 86.18 kg

DRUGS (17)
  1. REVLIMID (LENALIDOMIDE) (10 MILLIGRAM, CAPSULES) [Suspect]
     Indication: PLASMA CELL MYELOMA
     Dosage: 21 IN 21 D
     Route: 048
     Dates: start: 201303
  2. REVLIMID (LENALIDOMIDE) (10 MILLIGRAM, CAPSULES) [Suspect]
     Indication: MONOCLONAL GAMMOPATHY
     Dosage: 21 IN 21 D
     Route: 048
     Dates: start: 201303
  3. METOPROLOL (METOPROLOL) [Concomitant]
  4. PLAVIX (CLOPIDOGREL SULFATE) [Concomitant]
  5. LASIX (FUROSEMIDE) [Concomitant]
  6. ASPIRIN (ACETYLSALICYLIC ACID) [Concomitant]
  7. LOMOTIL (LOMOTIL) [Concomitant]
  8. VITAMIN D (ERGOCALCIFEROL) [Concomitant]
  9. PRILOSEC (OMEPRAZOLE) [Concomitant]
  10. AMBIEN (ZOLPIDEM TARTRATE) [Concomitant]
  11. NEURONTIN (GABAPENTIN) [Concomitant]
  12. TRADJENTA (LINAGLIPTIN) [Concomitant]
  13. TERAZOSIN (TERAZOSIN) [Concomitant]
  14. DECADRON (DEXAMETHASONE) [Concomitant]
  15. COUMADIN (WARFARIN SODIUM) [Concomitant]
  16. TYLENOL (PARACETAMOL) [Concomitant]
  17. PROVENTIL (SALBUTAMOL SULFATE) (SOLUTION) [Concomitant]

REACTIONS (1)
  - Platelet count decreased [None]
